FAERS Safety Report 10065127 (Version 1)
Quarter: 2014Q2

REPORT INFORMATION
  Report Type: Spontaneous
  Country: US (occurrence: None)
  Receive Date: 20140407
  Receipt Date: 20140407
  Transmission Date: 20141212
  Serious: Yes (Hospitalization)
  Sender: FDA-Public Use
  Company Number: None

PATIENT
  Age: 66 Year
  Sex: Male
  Weight: 103.9 kg

DRUGS (1)
  1. ACETAMINOPHEN/HYDROCODONE [Suspect]
     Indication: PAIN
     Dates: start: 20140221, end: 20140304

REACTIONS (6)
  - Paranoia [None]
  - Delusion [None]
  - Agitation [None]
  - Therapy cessation [None]
  - Drug withdrawal syndrome [None]
  - Substance use [None]
